FAERS Safety Report 8004835-8 (Version None)
Quarter: 2011Q4

REPORT INFORMATION
  Report Type: 
  Country: None (occurrence: None)
  Receive Date: 20111223
  Receipt Date: 20111213
  Transmission Date: 20120403
  Serious: Yes (Other)
  Sender: FDA-Public Use
  Company Number: FR-BRISTOL-MYERS SQUIBB COMPANY-16295321

PATIENT
  Age: 60 Year
  Sex: Female

DRUGS (1)
  1. HYDREA [Suspect]
     Indication: THROMBOCYTOSIS
     Route: 048
     Dates: start: 19910101

REACTIONS (1)
  - MALIGNANT MELANOMA [None]
